FAERS Safety Report 12100204 (Version 1)
Quarter: 2016Q1

REPORT INFORMATION
  Report Type: Report from Study
  Country: GB (occurrence: GB)
  Receive Date: 20160222
  Receipt Date: 20160222
  Transmission Date: 20160526
  Serious: Yes (Death, Other)
  Sender: FDA-Public Use
  Company Number: GB-AMAG PHARMACEUTICALS, INC.-AMAG201600215

PATIENT

DRUGS (2)
  1. BUSCOPAN [Concomitant]
     Active Substance: BUTYLSCOPOLAMINE BROMIDE
     Indication: PRODUCT USED FOR UNKNOWN INDICATION
     Dosage: 20 MG, UNK
     Route: 042
     Dates: start: 20130730, end: 20130731
  2. RIENSO [Suspect]
     Active Substance: FERUMOXYTOL
     Indication: IMAGING PROCEDURE
     Dosage: 11.5 ML, SINGLE
     Route: 042
     Dates: start: 20130730, end: 20130730

REACTIONS (1)
  - Lung neoplasm malignant [Fatal]

NARRATIVE: CASE EVENT DATE: 20160207
